FAERS Safety Report 19317269 (Version 1)
Quarter: 2021Q2

REPORT INFORMATION
  Report Type: Spontaneous
  Country: GB (occurrence: GB)
  Receive Date: 20210527
  Receipt Date: 20210527
  Transmission Date: 20210717
  Serious: Yes (Other)
  Sender: FDA-Public Use
  Company Number: NVSC2021GB110939

PATIENT

DRUGS (1)
  1. NEORAL [Suspect]
     Active Substance: CYCLOSPORINE
     Indication: MYOCARDIAL ISCHAEMIA
     Dosage: UNK
     Route: 065

REACTIONS (2)
  - Seizure [Unknown]
  - Dysphagia [Unknown]
